FAERS Safety Report 6973058-3 (Version None)
Quarter: 2010Q3

REPORT INFORMATION
  Report Type: 
  Country: None (occurrence: None)
  Receive Date: 20100907
  Receipt Date: 20100820
  Transmission Date: 20110219
  Serious: Yes (Other)
  Sender: FDA-Public Use
  Company Number: 2010PV000063

PATIENT
  Age: 18 Year
  Sex: Male
  Weight: 67 kg

DRUGS (1)
  1. DEPOCYT [Suspect]
     Indication: ACUTE MYELOID LEUKAEMIA
     Dosage: 50 MG; X 4; INTH
     Route: 037

REACTIONS (10)
  - BACK PAIN [None]
  - CAUDA EQUINA SYNDROME [None]
  - DIPLOPIA [None]
  - DYSURIA [None]
  - GASTROINTESTINAL MOTILITY DISORDER [None]
  - HEADACHE [None]
  - PAPILLOMA [None]
  - RETINAL HAEMORRHAGE [None]
  - SEPSIS [None]
  - SWELLING [None]
